FAERS Safety Report 6313410-2 (Version None)
Quarter: 2009Q3

REPORT INFORMATION
  Report Type: 
  Country: None (occurrence: None)
  Receive Date: 20090814
  Receipt Date: 20090814
  Transmission Date: 20100115
  Serious: Yes (Life-Threatening)
  Sender: FDA-Public Use
  Company Number: None

PATIENT
  Age: 52 Year
  Sex: Male
  Weight: 79.3795 kg

DRUGS (1)
  1. CELESTONE [Suspect]
     Indication: VIRAL INFECTION
     Dosage: 12 MG 1 DOSE IM
     Route: 030
     Dates: start: 20090805, end: 20090805

REACTIONS (6)
  - ANXIETY [None]
  - CONFUSIONAL STATE [None]
  - DIZZINESS [None]
  - HYPERTENSION [None]
  - PALPITATIONS [None]
  - TINNITUS [None]
